FAERS Safety Report 5275818-6 (Version None)
Quarter: 2007Q1

REPORT INFORMATION
  Report Type: 
  Country: None (occurrence: None)
  Receive Date: 20070326
  Receipt Date: 20070319
  Transmission Date: 20070707
  Serious: Yes (Other)
  Sender: FDA-Public Use
  Company Number: M-09-015

PATIENT
  Age: 57 Year
  Sex: Male

DRUGS (6)
  1. LAMICTAL [Suspect]
     Indication: AFFECTIVE DISORDER
     Dosage: 300MG PER DAY
     Route: 048
     Dates: start: 20050101
  2. KEPPRA [Suspect]
     Indication: AFFECTIVE DISORDER
     Dosage: 2000MG PER DAY
     Route: 048
  3. VENLAFAXINE HCL [Suspect]
     Indication: AFFECTIVE DISORDER
     Dosage: 37.5MG PER DAY
     Route: 048
     Dates: start: 20051231
  4. MIRTAZAPINE [Concomitant]
     Dosage: 30MG PER DAY
     Route: 048
     Dates: end: 20050222
  5. ASPIRIN [Concomitant]
     Route: 065
  6. LORAZEPAM [Concomitant]
     Route: 065

REACTIONS (4)
  - BLOOD CREATINE PHOSPHOKINASE INCREASED [None]
  - BLOOD CREATININE INCREASED [None]
  - RENAL FAILURE [None]
  - RHABDOMYOLYSIS [None]
